FAERS Safety Report 8806928 (Version 2)
Quarter: 2014Q3

REPORT INFORMATION
  Report Type: Report from Study
  Country: US (occurrence: US)
  Receive Date: 20120925
  Receipt Date: 20140908
  Transmission Date: 20150326
  Serious: Yes (Death, Other)
  Sender: FDA-Public Use
  Company Number: US-ROCHE-1124445

PATIENT
  Sex: Male

DRUGS (8)
  1. AVASTIN [Suspect]
     Active Substance: BEVACIZUMAB
     Indication: COLORECTAL CANCER
     Route: 065
  2. CAMPTOSAR [Concomitant]
     Active Substance: IRINOTECAN HYDROCHLORIDE
  3. AVASTIN [Suspect]
     Active Substance: BEVACIZUMAB
     Indication: COLON CANCER
     Route: 065
  4. AVASTIN [Suspect]
     Active Substance: BEVACIZUMAB
     Route: 065
  5. IRINOTECAN [Concomitant]
     Active Substance: IRINOTECAN
  6. AVASTIN [Suspect]
     Active Substance: BEVACIZUMAB
     Route: 065
  7. LEUCOVORIN [Concomitant]
     Active Substance: LEUCOVORIN
  8. 5-FLUOROURACIL [Concomitant]
     Active Substance: FLUOROURACIL

REACTIONS (4)
  - Metastases to lymph nodes [Unknown]
  - Metastases to liver [Unknown]
  - Neoplasm malignant [Unknown]
  - Death [Fatal]
